FAERS Safety Report 7729308-9 (Version None)
Quarter: 2011Q3

REPORT INFORMATION
  Report Type: 
  Country: None (occurrence: None)
  Receive Date: 20110906
  Receipt Date: 20110822
  Transmission Date: 20111222
  Serious: Yes (Death)
  Sender: FDA-Public Use
  Company Number: US-ENDO PHARMACEUTICALS INC.-OPER20110207

PATIENT
  Age: 39 Year
  Sex: Female

DRUGS (2)
  1. OPANA ER [Suspect]
     Dosage: UNK
     Route: 048
  2. HYDROCODONE [Concomitant]
     Dosage: UNK
     Route: 048

REACTIONS (1)
  - DEATH [None]
